FAERS Safety Report 8279152-1 (Version None)
Quarter: 2012Q2

REPORT INFORMATION
  Report Type: 
  Country: None (occurrence: None)
  Receive Date: 20120412
  Receipt Date: 20110708
  Transmission Date: 20120825
  Serious: No
  Sender: FDA-Public Use
  Company Number: US-ASTRAZENECA-2011SE40915

PATIENT
  Age: 51 Year
  Sex: Female
  Weight: 74.8 kg

DRUGS (2)
  1. PRADAXA [Concomitant]
     Indication: ATRIAL FIBRILLATION
  2. NEXIUM [Suspect]
     Indication: GASTROOESOPHAGEAL REFLUX DISEASE
     Route: 048
     Dates: start: 20110706

REACTIONS (3)
  - GASTROOESOPHAGEAL REFLUX DISEASE [None]
  - THROAT TIGHTNESS [None]
  - DRUG INEFFECTIVE [None]
